FAERS Safety Report 6145084-8 (Version None)
Quarter: 2009Q2

REPORT INFORMATION
  Report Type: 
  Country: None (occurrence: None)
  Receive Date: 20090406
  Receipt Date: 20081210
  Transmission Date: 20091009
  Serious: Yes (Other)
  Sender: FDA-Public Use
  Company Number: A0759735A

PATIENT
  Age: 2 Year
  Sex: Male

DRUGS (5)
  1. ADVAIR HFA [Suspect]
     Indication: ASTHMA
     Route: 055
     Dates: start: 20070901, end: 20081127
  2. SINGULAIR [Concomitant]
  3. ALBUTEROL [Concomitant]
  4. RHINOCORT [Concomitant]
  5. ZYRTEC [Concomitant]

REACTIONS (4)
  - COUGH [None]
  - DYSPNOEA [None]
  - ILL-DEFINED DISORDER [None]
  - PNEUMONIA [None]
